FAERS Safety Report 10950278 (Version 4)
Quarter: 2015Q4

REPORT INFORMATION
  Report Type: Spontaneous
  Country: US (occurrence: US)
  Receive Date: 20150324
  Receipt Date: 20151117
  Transmission Date: 20160304
  Serious: Yes (Life-Threatening, Hospitalization, Congenital Anomaly, Other)
  Sender: FDA-Public Use
  Company Number: US-ELI_LILLY_AND_COMPANY-US201503005494

PATIENT
  Age: 0 Day
  Sex: Female

DRUGS (1)
  1. PROZAC [Suspect]
     Active Substance: FLUOXETINE HYDROCHLORIDE
     Indication: PRODUCT USED FOR UNKNOWN INDICATION
     Dosage: UNK UNK, UNKNOWN
     Route: 064

REACTIONS (10)
  - Mental retardation [Unknown]
  - Seizure [Unknown]
  - Microcephaly [Unknown]
  - Small for dates baby [Unknown]
  - Foetal exposure during pregnancy [Unknown]
  - Ventricular septal defect [Unknown]
  - Phenylketonuria [Unknown]
  - Apnoea neonatal [Recovered/Resolved]
  - Developmental delay [Unknown]
  - Talipes [Unknown]

NARRATIVE: CASE EVENT DATE: 20071221
